FAERS Safety Report 7124649-0 (Version None)
Quarter: 2010Q4

REPORT INFORMATION
  Report Type: 
  Country: None (occurrence: None)
  Receive Date: 20101129
  Receipt Date: 20101115
  Transmission Date: 20110411
  Serious: Yes (Other)
  Sender: FDA-Public Use
  Company Number: US-ELI_LILLY_AND_COMPANY-US201004004579

PATIENT
  Sex: Female

DRUGS (11)
  1. FORTEO [Suspect]
     Indication: OSTEOPOROSIS
     Dosage: 20 UG, DAILY (1/D)
     Dates: start: 20090701, end: 20100401
  2. FORTEO [Suspect]
     Dosage: 20 UG, DAILY (1/D)
     Dates: end: 20101029
  3. GLUCOPHAGE [Concomitant]
     Dosage: UNK, 2/D
  4. PREVACID [Concomitant]
     Dosage: 30 MG, DAILY (1/D)
  5. CALCIUM [Concomitant]
     Dosage: UNK, DAILY (1/D)
  6. CITRACAL [Concomitant]
     Dosage: UNK, DAILY (1/D)
  7. WELCHOL [Concomitant]
     Dosage: 1875 MG, 2/D
  8. ZETIA [Concomitant]
     Dosage: 10 MG, DAILY (1/D)
  9. PAXIL [Concomitant]
     Dosage: 37.5 MG, DAILY (1/D)
  10. AMBIEN [Concomitant]
     Dosage: UNK, EACH EVENING
  11. PERCOCET [Concomitant]
     Dosage: UNK, DAILY (1/D)

REACTIONS (7)
  - EAR DISCOMFORT [None]
  - HEART RATE INCREASED [None]
  - MUSCLE SPASMS [None]
  - PALPITATIONS [None]
  - SLEEP DISORDER [None]
  - SPINAL DISORDER [None]
  - TREMOR [None]
